FAERS Safety Report 23611916 (Version 1)
Quarter: 2024Q1

REPORT INFORMATION
  Report Type: Spontaneous
  Country: US (occurrence: US)
  Receive Date: 20240308
  Receipt Date: 20240308
  Transmission Date: 20240409
  Serious: Yes (Other)
  Sender: FDA-Public Use
  Company Number: US-PFIZER INC-202400057541

PATIENT
  Age: 41 Year
  Sex: Female
  Weight: 77.11 kg

DRUGS (2)
  1. OXBRYTA [Suspect]
     Active Substance: VOXELOTOR
     Indication: Sickle cell anaemia
     Dosage: 2 DF, 1X/DAY (TWO PILLS A DAY SWALLOW WITH WATER OR JUICE IN MORNING)
     Route: 048
     Dates: start: 202312
  2. HYDROXYUREA [Suspect]
     Active Substance: HYDROXYUREA
     Indication: Sickle cell disease
     Dosage: 2 DF, DAILY (ONE PILL IN THE MORNING AND ONE PILL AT NIGHT SWALLOW WITH WATER)
     Route: 048

REACTIONS (1)
  - Sickle cell anaemia with crisis [Recovering/Resolving]

NARRATIVE: CASE EVENT DATE: 20240302
